FAERS Safety Report 20659986 (Version 1)
Quarter: 2022Q1

REPORT INFORMATION
  Report Type: Spontaneous
  Country: US (occurrence: None)
  Receive Date: 20220331
  Receipt Date: 20220331
  Transmission Date: 20220423
  Serious: No
  Sender: FDA-Public Use
  Company Number: US-Eisai Medical Research-EC-2022-111185

PATIENT
  Age: 56 Year
  Sex: Female

DRUGS (2)
  1. LENVIMA [Suspect]
     Active Substance: LENVATINIB
     Indication: Product used for unknown indication
     Dosage: DOSE AND FREQUENCY UNKKNOWN
     Route: 048
  2. COUMADIN [Suspect]
     Active Substance: WARFARIN SODIUM
     Indication: Cerebrovascular accident
     Dosage: DOSE AND FREQUENCY UNKKNOWN
     Route: 065

REACTIONS (3)
  - Fall [Unknown]
  - Increased tendency to bruise [Unknown]
  - International normalised ratio increased [Unknown]
